FAERS Safety Report 8274443-2 (Version None)
Quarter: 2012Q2

REPORT INFORMATION
  Report Type: 
  Country: None (occurrence: None)
  Receive Date: 20120409
  Receipt Date: 20120402
  Transmission Date: 20120825
  Serious: Yes (Hospitalization)
  Sender: FDA-Public Use
  Company Number: 2012-001329

PATIENT
  Age: 82 Year
  Sex: Female

DRUGS (7)
  1. REBAMIPIDE (REBAMIPIDE) [Concomitant]
  2. BLOPRSS (CANDESARTAN CILEXETIL) [Concomitant]
  3. MOBIC [Concomitant]
  4. PREDONIEN /00016201/ (PREDNISOLONE) [Concomitant]
  5. FALKEN (FLURBIPROFEN) [Concomitant]
  6. LOXOPROFEN (LOXOPROFEN) [Concomitant]
  7. RISEDRONATE SODIUM [Suspect]
     Indication: OSTEOPOROSIS
     Dosage: 17.5 MG ONCE WEEKLY, ORAL
     Route: 048
     Dates: start: 20071018, end: 20120310

REACTIONS (2)
  - OESOPHAGEAL STENOSIS [None]
  - OESOPHAGEAL FOOD IMPACTION [None]
